FAERS Safety Report 13932791 (Version 2)
Quarter: 2017Q3

REPORT INFORMATION
  Report Type: Spontaneous
  Country: TR (occurrence: TR)
  Receive Date: 20170904
  Receipt Date: 20170911
  Transmission Date: 20171127
  Serious: Yes (Other)
  Sender: FDA-Public Use
  Company Number: TR-UCBSA-2017033379

PATIENT
  Sex: Male

DRUGS (7)
  1. MIDAZOLAM [Concomitant]
     Indication: SEIZURE
     Dosage: UNK
  2. FOLIC ACID W/PYRIDOXINE HYDROCHLORIDE [Concomitant]
     Indication: NONKETOTIC HYPERGLYCINAEMIA
     Dosage: UNKNOWN DOSE
  3. LEVETIRACETAM. [Suspect]
     Active Substance: LEVETIRACETAM
     Indication: EPILEPSY
     Dosage: UNK
  4. PHENYTOIN [Concomitant]
     Indication: SEIZURE
     Dosage: UNK
  5. DEXTROMETHORPHAN [Concomitant]
     Active Substance: DEXTROMETHORPHAN
     Indication: NONKETOTIC HYPERGLYCINAEMIA
     Dosage: UNKNOWN DOSE
  6. PHENOBARBITAL [Concomitant]
     Indication: SEIZURE
     Dosage: UNK
  7. SODIUM BENZOATE [Concomitant]
     Active Substance: SODIUM BENZOATE
     Indication: NONKETOTIC HYPERGLYCINAEMIA
     Dosage: UNKNOWN DOSE

REACTIONS (2)
  - Speech disorder developmental [Recovered/Resolved with Sequelae]
  - Motor developmental delay [Recovered/Resolved with Sequelae]
